FAERS Safety Report 26128120 (Version 1)
Quarter: 2025Q4

REPORT INFORMATION
  Report Type: Spontaneous
  Country: GB (occurrence: GB)
  Receive Date: 20251207
  Receipt Date: 20251207
  Transmission Date: 20260118
  Serious: Yes (Hospitalization)
  Sender: DEXCEL LTD.
  Company Number: GB-MLMSERVICE-20251117-PI717541-00031-1

PATIENT
  Age: 5 Decade
  Sex: Male

DRUGS (4)
  1. FERINJECT [Suspect]
     Active Substance: FERRIC CARBOXYMALTOSE
     Indication: Iron deficiency anaemia
     Route: 040
     Dates: start: 20240328, end: 2024
  2. FERINJECT [Suspect]
     Active Substance: FERRIC CARBOXYMALTOSE
     Indication: Iron deficiency anaemia
     Dosage: PRIOR TO DISCHARGE
     Route: 040
     Dates: start: 20240404, end: 2024
  3. OMEPRAZOLE [Suspect]
     Active Substance: OMEPRAZOLE
     Indication: Oesophageal ulcer haemorrhage
     Dosage: HIGH DOSE
     Route: 040
     Dates: start: 202403
  4. EPINEPHRINE [Concomitant]
     Active Substance: EPINEPHRINE
     Indication: Oesophageal ulcer haemorrhage
     Dates: start: 202403

REACTIONS (2)
  - Hypophosphataemia [Recovering/Resolving]
  - Off label use [Unknown]

NARRATIVE: CASE EVENT DATE: 20240101
